FAERS Safety Report 20335604 (Version 1)
Quarter: 2022Q1

REPORT INFORMATION
  Report Type: Spontaneous
  Country: FR (occurrence: FR)
  Receive Date: 20220114
  Receipt Date: 20220114
  Transmission Date: 20220423
  Serious: Yes (Death)
  Sender: FDA-Public Use
  Company Number: None

PATIENT
  Age: 93 Year
  Sex: Female
  Weight: 51.9 kg

DRUGS (2)
  1. FLUCONAZOLE [Suspect]
     Active Substance: FLUCONAZOLE
     Dosage: 200 MG, 1X/DAY
     Route: 048
     Dates: end: 20211205
  2. METHOTREXATE [Suspect]
     Active Substance: METHOTREXATE
     Indication: Rheumatoid arthritis
     Dosage: 50 MG, WEEKLY (INSTEAD OF 15 MG/WEEKLY)
     Route: 058
     Dates: start: 20211110, end: 20211205

REACTIONS (2)
  - Product prescribing error [Fatal]
  - Pancytopenia [Fatal]

NARRATIVE: CASE EVENT DATE: 20211205
